FAERS Safety Report 9055965 (Version 1)
Quarter: 2013Q1

REPORT INFORMATION
  Report Type: Spontaneous
  Country: US (occurrence: US)
  Receive Date: 20130206
  Receipt Date: 20130206
  Transmission Date: 20140127
  Serious: No
  Sender: FDA-Public Use
  Company Number: US-ALLERGAN-1201668US

PATIENT
  Sex: Female
  Weight: 63.49 kg

DRUGS (1)
  1. RESTASIS? [Suspect]
     Indication: DRY EYE
     Dosage: 2 GTT, BID
     Route: 047
     Dates: start: 201201, end: 201201

REACTIONS (6)
  - Conjunctivitis [Recovered/Resolved]
  - Bacterial infection [Recovered/Resolved]
  - Eye discharge [Not Recovered/Not Resolved]
  - Eye pruritus [Recovered/Resolved]
  - Lacrimation increased [Recovered/Resolved]
  - Ocular hyperaemia [Recovered/Resolved]
